FAERS Safety Report 8367955-4 (Version None)
Quarter: 2012Q2

REPORT INFORMATION
  Report Type: 
  Country: None (occurrence: None)
  Receive Date: 20120517
  Receipt Date: 20120516
  Transmission Date: 20120825
  Serious: Yes (Hospitalization, Other)
  Sender: FDA-Public Use
  Company Number: US-PFIZER INC-2012119869

PATIENT
  Sex: Female
  Weight: 62.132 kg

DRUGS (3)
  1. CHANTIX [Suspect]
     Indication: SMOKING CESSATION THERAPY
     Dosage: 0.5 MG, DAILY
     Route: 048
     Dates: start: 20070128, end: 20070422
  2. CHANTIX [Suspect]
     Dosage: UNK
     Route: 048
     Dates: start: 20120501, end: 20120501
  3. VITAMIN TAB [Concomitant]
     Dosage: UNK

REACTIONS (2)
  - BIPOLAR DISORDER [None]
  - MENTAL DISORDER [None]
